FAERS Safety Report 24330386 (Version 1)
Quarter: 2024Q3

REPORT INFORMATION
  Report Type: Report from Study
  Country: IN (occurrence: None)
  Receive Date: 20240918
  Receipt Date: 20240918
  Transmission Date: 20241016
  Serious: Yes (Other)
  Sender: ASTRAZENECA
  Company Number: 2024A207450

PATIENT
  Age: 70 Year
  Sex: Male
  Weight: 45 kg

DRUGS (2)
  1. IMFINZI [Suspect]
     Active Substance: DURVALUMAB
     Indication: Immunochemotherapy
     Route: 042
     Dates: start: 20240731
  2. DOLO [Concomitant]

REACTIONS (7)
  - Tremor [Not Recovered/Not Resolved]
  - Muscular weakness [Recovering/Resolving]
  - Asthenia [Not Recovered/Not Resolved]
  - Dysstasia [Not Recovered/Not Resolved]
  - Amnesia [Not Recovered/Not Resolved]
  - Fluid intake reduced [Not Recovered/Not Resolved]
  - Cough [Not Recovered/Not Resolved]
